FAERS Safety Report 9520478 (Version 1)
Quarter: 2013Q3

REPORT INFORMATION
  Report Type: Spontaneous
  Country: GB (occurrence: GB)
  Receive Date: 20130913
  Receipt Date: 20130913
  Transmission Date: 20140515
  Serious: Yes (Life-Threatening, Disabling, Other)
  Sender: FDA-Public Use
  Company Number: GB-MYLANLABS-2013S1019610

PATIENT
  Age: 26 Year
  Sex: Male
  Weight: 70 kg

DRUGS (1)
  1. RISPERIDONE [Suspect]
     Indication: DELUSIONAL DISORDER, UNSPECIFIED TYPE
     Route: 048
     Dates: start: 20090601, end: 20130210

REACTIONS (13)
  - Withdrawal syndrome [Recovered/Resolved]
  - Hypertension [Recovering/Resolving]
  - Communication disorder [Unknown]
  - Dissociation [Unknown]
  - Disorientation [Recovering/Resolving]
  - Headache [Recovering/Resolving]
  - Heart injury [Recovering/Resolving]
  - Mental impairment [Recovering/Resolving]
  - Memory impairment [Recovering/Resolving]
  - Motor dysfunction [Recovering/Resolving]
  - Sedation [Recovering/Resolving]
  - Speech disorder [Recovering/Resolving]
  - Tachycardia [Recovering/Resolving]
